FAERS Safety Report 20648102 (Version 1)
Quarter: 2022Q1

REPORT INFORMATION
  Report Type: Spontaneous
  Country: BR (occurrence: BR)
  Receive Date: 20220329
  Receipt Date: 20220329
  Transmission Date: 20220423
  Serious: Yes (Death, Other)
  Sender: FDA-Public Use
  Company Number: BR-BRISTOL-MYERS SQUIBB COMPANY-2022-010414

PATIENT
  Age: 60 Year
  Sex: Female

DRUGS (2)
  1. REVLIMID [Suspect]
     Active Substance: LENALIDOMIDE
     Indication: 5q minus syndrome
     Dosage: 21 DAYS, 7 DAYS BREAK (28 DAY CYCLE)?RISK CATEGORY: WOMAN WITH NO CHILDBEARING POTENTIAL?TOTAL NUMBE
     Route: 065
     Dates: start: 20210913
  2. REVLIMID [Suspect]
     Active Substance: LENALIDOMIDE
     Dosage: NUMBER OF CAPSULES: 21?EXPIRY DATE: UNAVAILABLE
     Route: 065
     Dates: start: 20210916

REACTIONS (1)
  - Death [Fatal]

NARRATIVE: CASE EVENT DATE: 20220131
